FAERS Safety Report 5074743-3 (Version None)
Quarter: 2006Q3

REPORT INFORMATION
  Report Type: 
  Country: None (occurrence: None)
  Receive Date: 20060804
  Receipt Date: 20060728
  Transmission Date: 20061208
  Serious: Yes (Hospitalization, Disabling)
  Sender: FDA-Public Use
  Company Number: 2006BI008673

PATIENT
  Age: 50 Year
  Sex: Female

DRUGS (1)
  1. AVONEX [Suspect]
     Indication: MULTIPLE SCLEROSIS
     Dosage: 30 UG QW IM
     Route: 030
     Dates: start: 19980226

REACTIONS (7)
  - AMNESIA [None]
  - BLOOD POTASSIUM DECREASED [None]
  - CATATONIA [None]
  - DECREASED ACTIVITY [None]
  - DEHYDRATION [None]
  - EXOSTOSIS [None]
  - PSYCHOTIC DISORDER [None]
